FAERS Safety Report 17446446 (Version 1)
Quarter: 2020Q1

REPORT INFORMATION
  Report Type: Spontaneous
  Country: US (occurrence: US)
  Receive Date: 20200221
  Receipt Date: 20200221
  Transmission Date: 20200409
  Serious: No
  Sender: FDA-Public Use
  Company Number: US-BRACCO-2019US03721

PATIENT
  Age: 56 Year
  Sex: Female

DRUGS (1)
  1. ISOVUE 370 [Suspect]
     Active Substance: IOPAMIDOL
     Indication: ANGIOGRAM
     Dosage: UNK UNK, SINGLE
     Route: 042
     Dates: start: 20190619, end: 20190619

REACTIONS (3)
  - Extravasation [Unknown]
  - Discomfort [Unknown]
  - Pain [Unknown]

NARRATIVE: CASE EVENT DATE: 20190619
